FAERS Safety Report 9183405 (Version 1)
Quarter: 2013Q1

REPORT INFORMATION
  Report Type: Spontaneous
  Country: US (occurrence: US)
  Receive Date: 20130322
  Receipt Date: 20130322
  Transmission Date: 20140127
  Serious: No
  Sender: FDA-Public Use
  Company Number: US-BRISTOL-MYERS SQUIBB COMPANY-17290289

PATIENT
  Age: 80 Year
  Sex: Female

DRUGS (2)
  1. ERBITUX [Suspect]
     Indication: COLON CANCER
  2. IRINOTECAN [Suspect]
     Indication: COLON CANCER

REACTIONS (3)
  - Diarrhoea [Unknown]
  - Nausea [Unknown]
  - Rash [Unknown]
